FAERS Safety Report 11784231 (Version 4)
Quarter: 2015Q4

REPORT INFORMATION
  Report Type: Report from Study
  Country: IT (occurrence: IT)
  Receive Date: 20151128
  Receipt Date: 20151215
  Transmission Date: 20160305
  Serious: Yes (Life-Threatening, Hospitalization)
  Sender: FDA-Public Use
  Company Number: PHHO2015IT014690

PATIENT
  Age: 17 Year
  Sex: Male
  Weight: 56.5 kg

DRUGS (3)
  1. AMN107 [Suspect]
     Active Substance: NILOTINIB
     Indication: CHRONIC MYELOID LEUKAEMIA
     Dosage: 400 MG, BID
     Route: 048
     Dates: start: 20140827, end: 20150921
  2. AMN107 [Suspect]
     Active Substance: NILOTINIB
     Dosage: 380 MG, QD
     Route: 048
     Dates: start: 20150925, end: 20150928
  3. AMN107 [Suspect]
     Active Substance: NILOTINIB
     Dosage: 350 MG, QD
     Route: 048
     Dates: start: 20151014, end: 20151021

REACTIONS (2)
  - Weight decreased [Recovering/Resolving]
  - Hyperbilirubinaemia [Recovering/Resolving]

NARRATIVE: CASE EVENT DATE: 20150922
